FAERS Safety Report 7101438-4 (Version None)
Quarter: 2010Q4

REPORT INFORMATION
  Report Type: 
  Country: None (occurrence: None)
  Receive Date: 20101108
  Receipt Date: 20101025
  Transmission Date: 20110411
  Serious: Yes (Life-Threatening, Hospitalization)
  Sender: FDA-Public Use
  Company Number: CTI_01236_2010

PATIENT
  Sex: Female

DRUGS (5)
  1. MEIACT (MEIACT MS - CEFDITOREN PIVOXIL) (NOT SPECIFIED) [Suspect]
     Indication: NASOPHARYNGITIS
     Dosage: 300 MG ORAL
     Route: 048
     Dates: start: 20100715, end: 20100717
  2. MEIACT (MEIACT MS - CEFDITOREN PIVOXIL) (NOT SPECIFIED) [Suspect]
     Indication: PYREXIA
     Dosage: 300 MG ORAL
     Route: 048
     Dates: start: 20100715, end: 20100717
  3. MEIACT (MEIACT MS - CEFDITOREN PIVOXIL) (NOT SPECIFIED) [Suspect]
     Indication: RESPIRATORY TRACT INFECTION
     Dosage: 300 MG ORAL
     Route: 048
     Dates: start: 20100715, end: 20100717
  4. NON-PYRAZOLONE COLD DRUG [Concomitant]
  5. TRANEXAMIC ACID [Concomitant]

REACTIONS (1)
  - PANCYTOPENIA [None]
